FAERS Safety Report 10289485 (Version 2)
Quarter: 2015Q2

REPORT INFORMATION
  Report Type: Spontaneous
  Country: US (occurrence: None)
  Receive Date: 20140707
  Receipt Date: 20150608
  Transmission Date: 20150821
  Serious: Yes (Other)
  Sender: FDA-Public Use
  Company Number: UNT-2014-001551

PATIENT
  Sex: Female

DRUGS (1)
  1. REMODULIN [Suspect]
     Active Substance: TREPROSTINIL
     Indication: PULMONARY ARTERIAL HYPERTENSION
     Dates: start: 200912

REACTIONS (6)
  - Drug dose omission [None]
  - Presyncope [None]
  - Head injury [None]
  - Concussion [None]
  - Diarrhoea [None]
  - Syncope [None]

NARRATIVE: CASE EVENT DATE: 201405
